FAERS Safety Report 8295502-4 (Version None)
Quarter: 2012Q2

REPORT INFORMATION
  Report Type: 
  Country: None (occurrence: None)
  Receive Date: 20120418
  Receipt Date: 20120412
  Transmission Date: 20120825
  Serious: Yes (Hospitalization, Other)
  Sender: FDA-Public Use
  Company Number: PHHO2011CA14015

PATIENT
  Sex: Female
  Weight: 11.305 kg

DRUGS (12)
  1. TOBRAMYCIN [Suspect]
     Indication: PSEUDOMONAS INFECTION
     Dosage: DOUBLE BLINDED
     Dates: start: 20100611, end: 20100708
  2. VITAMIN E [Concomitant]
     Indication: VITAMIN SUPPLEMENTATION
     Dosage: UNK
  3. BLINDED NO TREATMENT RECEIVED [Suspect]
     Indication: PSEUDOMONAS INFECTION
     Dosage: DOUBLE BLINDED
     Dates: start: 20100611, end: 20100708
  4. SODIUM CHLORIDE [Concomitant]
     Indication: ENZYME SUPPLEMENTATION
     Dosage: 4 CUPS BID-TID
     Dates: start: 20100525
  5. TEMPRA [Concomitant]
     Indication: PYREXIA
  6. MOTILIUM [Concomitant]
     Indication: PROPHYLAXIS
     Dosage: 3 MG, UNK
     Route: 048
     Dates: start: 20100909
  7. CREON [Concomitant]
     Indication: ENZYME SUPPLEMENTATION
     Dosage: 3-4 CUPS TID
     Dates: start: 20100927
  8. DEXAMETHASONE [Suspect]
     Dosage: 0.5 MG, QD
     Route: 048
     Dates: start: 20110814, end: 20110816
  9. EPINEPHRINE [Suspect]
     Dosage: 5 ML 1/600 NEB PRN
     Dates: start: 20110814, end: 20110815
  10. TRI-VI-SOL [Concomitant]
     Indication: VITAMIN SUPPLEMENTATION
     Dosage: UNK
     Dates: start: 20091101
  11. DEXAMETHASONE [Suspect]
     Dosage: 6 MG, IX
     Route: 048
     Dates: start: 20110817, end: 20110817
  12. PLACEBO [Suspect]
     Indication: PSEUDOMONAS INFECTION
     Dosage: DOUBLE BLINDED
     Dates: start: 20100611, end: 20100708

REACTIONS (2)
  - HYPERTENSION [None]
  - CROUP INFECTIOUS [None]
